FAERS Safety Report 6860335-X (Version None)
Quarter: 2010Q3

REPORT INFORMATION
  Report Type: 
  Country: None (occurrence: None)
  Receive Date: 20100720
  Receipt Date: 20100702
  Transmission Date: 20110219
  Serious: Yes (Other)
  Sender: FDA-Public Use
  Company Number: PHHY2009JP36335

PATIENT
  Sex: Male

DRUGS (20)
  1. GLEEVEC [Suspect]
     Indication: CHRONIC MYELOID LEUKAEMIA
     Dosage: 400 MG/DAY
     Route: 048
     Dates: start: 20050720, end: 20050901
  2. GLEEVEC [Suspect]
     Dosage: 100 MG DAILY
     Route: 048
     Dates: start: 20050928, end: 20051101
  3. GLEEVEC [Suspect]
     Dosage: 400 MG DAILY
     Route: 048
     Dates: start: 20051101, end: 20060418
  4. GLEEVEC [Suspect]
     Dosage: 300 MG DAILY
     Route: 048
     Dates: start: 20060419, end: 20080115
  5. GLEEVEC [Suspect]
     Dosage: 400 MG DAILY
     Route: 048
     Dates: start: 20080116, end: 20080511
  6. GLEEVEC [Suspect]
     Dosage: 500 MG DAILY
     Route: 048
     Dates: start: 20080512, end: 20080727
  7. GLEEVEC [Suspect]
     Dosage: 400 MG DAILY
     Route: 048
     Dates: start: 20080728, end: 20081116
  8. GLEEVEC [Suspect]
     Dosage: 500 MG DAILY
     Route: 048
     Dates: start: 20081117, end: 20081221
  9. GLEEVEC [Suspect]
     Dosage: 400 MG DAILY
     Route: 048
     Dates: start: 20081222, end: 20090405
  10. GLEEVEC [Suspect]
     Dosage: 300 MG DAILY
     Route: 048
     Dates: start: 20090406, end: 20090524
  11. BEZATOL - SLOW RELEASE [Concomitant]
     Indication: HYPERLIPIDAEMIA
     Dosage: 400 MG, UNK
     Route: 048
  12. NORVASC [Concomitant]
     Indication: HYPERTENSION
     Dosage: 5 MG, UNK
     Route: 048
  13. NORVASC [Concomitant]
     Dosage: 7.5 MG, UNK
     Route: 048
  14. LASIX [Concomitant]
     Indication: CARDIAC FAILURE CHRONIC
     Dosage: 20 MG, UNK
     Route: 048
  15. LASIX [Concomitant]
     Dosage: 10 MG, UNK
     Route: 048
  16. ZYLORIC [Concomitant]
     Indication: HYPERURICAEMIA
     Dosage: 100 MG, UNK
     Route: 048
  17. NU-LOTAN [Concomitant]
     Indication: HYPERTENSION
     Dosage: 50 MG, UNK
     Route: 048
  18. NU-LOTAN [Concomitant]
     Dosage: 25 MG, UNK
     Route: 048
  19. WARFARIN SODIUM [Concomitant]
     Indication: ATRIAL FIBRILLATION
     Dosage: 1 MG, UNK
     Route: 048
     Dates: start: 20061121
  20. WARFARIN SODIUM [Concomitant]
     Dosage: 1.5 MG, UNK
     Route: 048

REACTIONS (10)
  - BLOOD CREATININE INCREASED [None]
  - EYELID OEDEMA [None]
  - EYELID OPERATION [None]
  - FACE OEDEMA [None]
  - GLOMERULAR FILTRATION RATE DECREASED [None]
  - MALAISE [None]
  - MUSCLE SPASMS [None]
  - OEDEMA PERIPHERAL [None]
  - PAIN IN EXTREMITY [None]
  - RENAL FAILURE CHRONIC [None]
